FAERS Safety Report 10517036 (Version 4)
Quarter: 2014Q4

REPORT INFORMATION
  Report Type: Spontaneous
  Country: FR (occurrence: FR)
  Receive Date: 20141014
  Receipt Date: 20141121
  Transmission Date: 20150528
  Serious: Yes (Disabling, Other)
  Sender: FDA-Public Use
  Company Number: FR-MYLANLABS-2007S1013366

PATIENT

DRUGS (14)
  1. LOXEN [Concomitant]
     Active Substance: NICARDIPINE HYDROCHLORIDE
     Dosage: UNK
     Route: 065
  2. MERCAPTAMINE BITARTRATE [Suspect]
     Active Substance: CYSTEAMINE
     Dosage: 800 MG, QD
     Route: 048
     Dates: start: 200110, end: 200502
  3. ALPHACALCIDOL [Concomitant]
     Active Substance: ALFACALCIDOL
     Dosage: UNK
     Route: 065
     Dates: start: 20030402
  4. SODIUM BICARBONATE. [Concomitant]
     Active Substance: SODIUM BICARBONATE
     Dosage: UNK
     Route: 065
  5. POTASSIUM [Concomitant]
     Active Substance: POTASSIUM
     Dosage: UNK
     Route: 065
  6. LEVOCARNIL [Concomitant]
     Active Substance: LEVOCARNITINE
     Dosage: UNK
     Route: 065
  7. MERCAPTAMINE BITARTRATE [Suspect]
     Active Substance: CYSTEAMINE
     Dosage: ??
  8. MERCAPTAMINE BITARTRATE [Suspect]
     Active Substance: CYSTEAMINE
     Dosage: 1000 MG, QD
     Dates: start: 200502
  9. INDOCID /00003801/ [Concomitant]
     Active Substance: INDOMETHACIN
     Dosage: UNK
     Route: 065
     Dates: start: 20020430
  10. MERCAPTAMINE BITARTRATE [Suspect]
     Active Substance: CYSTEAMINE
     Indication: CYSTINOSIS
     Dosage: UNK UNK, QD
     Route: 048
     Dates: start: 20011019
  11. MERCAPTAMINE BITARTRATE [Suspect]
     Active Substance: CYSTEAMINE
     Dosage: 300 MG, QD
     Route: 048
  12. MERCAPTAMINE BITARTRATE [Suspect]
     Active Substance: CYSTEAMINE
     Dosage: 20 MG/KG, QD
     Route: 048
  13. MERCAPTAMINE BITARTRATE [Suspect]
     Active Substance: CYSTEAMINE
     Dosage: 40 MG/KG, QD
     Route: 048
  14. PHOSPHONEUROS [Concomitant]
     Active Substance: CALCIUM PHOSPHATE, DIBASIC, ANHYDROUS\MAGNESIUM GLYCEROPHOSPHATE\PHOSPHORIC ACID\SODIUM PHOSPHATE, DIBASIC
     Dosage: UNK
     Route: 065

REACTIONS (12)
  - Overdose [Recovered/Resolved]
  - Intravascular papillary endothelial hyperplasia [Not Recovered/Not Resolved]
  - Bone deformity [Not Recovered/Not Resolved]
  - Gait disturbance [Not Recovered/Not Resolved]
  - Walking disability [Not Recovered/Not Resolved]
  - Subcutaneous abscess [Recovered/Resolved]
  - Bone pain [Not Recovered/Not Resolved]
  - Autism [Not Recovered/Not Resolved]
  - Skin fragility [Recovered/Resolved with Sequelae]
  - Osteoporosis [Not Recovered/Not Resolved]
  - Toxicity to various agents [Not Recovered/Not Resolved]
  - Skin fragility [Not Recovered/Not Resolved]
